FAERS Safety Report 5407159-8 (Version None)
Quarter: 2007Q3

REPORT INFORMATION
  Report Type: 
  Country: None (occurrence: None)
  Receive Date: 20070803
  Receipt Date: 20070803
  Transmission Date: 20080115
  Serious: No
  Sender: FDA-Public Use
  Company Number: None

PATIENT
  Sex: Male
  Weight: 97.5234 kg

DRUGS (3)
  1. PROAIR HFA [Suspect]
     Indication: BRONCHITIS CHRONIC
     Dosage: 2 ACTUATIONS 4 HRS. OR AS NEED INHAL
     Route: 055
     Dates: start: 20070531, end: 20070801
  2. PROAIR HFA [Suspect]
     Indication: CHRONIC OBSTRUCTIVE PULMONARY DISEASE
     Dosage: 2 ACTUATIONS 4 HRS. OR AS NEED INHAL
     Route: 055
     Dates: start: 20070531, end: 20070801
  3. PROAIR HFA [Suspect]

REACTIONS (3)
  - DEVICE MALFUNCTION [None]
  - PHARMACEUTICAL PRODUCT COMPLAINT [None]
  - POOR QUALITY DRUG ADMINISTERED [None]
